FAERS Safety Report 7176664-9 (Version None)
Quarter: 2010Q4

REPORT INFORMATION
  Report Type: 
  Country: None (occurrence: None)
  Receive Date: 20101220
  Receipt Date: 20101207
  Transmission Date: 20110411
  Serious: Yes (Other)
  Sender: FDA-Public Use
  Company Number: US-EISAI INC.-E7389-01089-CLI-US

PATIENT
  Age: 53 Year
  Sex: Female

DRUGS (2)
  1. E7389 (BOLD) [Suspect]
     Indication: OVARIAN CANCER
     Route: 041
     Dates: start: 20100427, end: 20101116
  2. GEMCITABINE [Concomitant]
     Indication: OVARIAN CANCER
     Route: 041
     Dates: start: 20100427, end: 20101116

REACTIONS (1)
  - PULMONARY EMBOLISM [None]
